FAERS Safety Report 9667925 (Version 1)
Quarter: 2013Q4

REPORT INFORMATION
  Report Type: Report from Study
  Country: US (occurrence: US)
  Receive Date: 20131104
  Receipt Date: 20131104
  Transmission Date: 20140711
  Serious: Yes (Death)
  Sender: FDA-Public Use
  Company Number: US-SA-2013SA103949

PATIENT
  Sex: 0

DRUGS (2)
  1. SARGRAMOSTIM [Suspect]
     Indication: METASTATIC MALIGNANT MELANOMA
     Dosage: RECEIVED ON DAY 1 TO 14 EVERY 3 WEEKS.
     Route: 058
  2. IPILIMUMAB [Suspect]
     Indication: METASTATIC MALIGNANT MELANOMA
     Route: 042

REACTIONS (1)
  - Cardiac arrest [Fatal]
